FAERS Safety Report 23533682 (Version 1)
Quarter: 2024Q1

REPORT INFORMATION
  Report Type: Spontaneous
  Country: AU (occurrence: AU)
  Receive Date: 20240216
  Receipt Date: 20240216
  Transmission Date: 20240410
  Serious: Yes (Other)
  Sender: FDA-Public Use
  Company Number: AU-OTSUKA-2024_003908

PATIENT
  Sex: Male

DRUGS (1)
  1. INQOVI [Suspect]
     Active Substance: CEDAZURIDINE\DECITABINE
     Indication: Product used for unknown indication
     Dosage: UNK (35 MG OF DECITABINE AND 100 MG OF CEDAZURIDINE)
     Route: 065

REACTIONS (4)
  - Anal abscess [Unknown]
  - Myelosuppression [Unknown]
  - Bacterial sepsis [Unknown]
  - Febrile neutropenia [Unknown]
